FAERS Safety Report 14965266 (Version 7)
Quarter: 2019Q4

REPORT INFORMATION
  Report Type: Report from Study
  Country: US (occurrence: US)
  Receive Date: 20180601
  Receipt Date: 20191211
  Transmission Date: 20200122
  Serious: Yes (Death, Hospitalization)
  Sender: FDA-Public Use
  Company Number: US-ACTELION-A-NJ2017-151791

PATIENT
  Age: 72 Year
  Sex: Male
  Weight: 86.17 kg

DRUGS (9)
  1. OXYCODONE [Concomitant]
     Active Substance: OXYCODONE
     Dosage: 5 MG, PRN
  2. SILDENAFIL CITRATE. [Concomitant]
     Active Substance: SILDENAFIL CITRATE
     Dosage: 80 MG, TID
  3. ELIQUIS [Concomitant]
     Active Substance: APIXABAN
  4. VENTOLIN HFA [Concomitant]
     Active Substance: ALBUTEROL SULFATE
     Dosage: UNK, PRN
  5. AMBIEN [Concomitant]
     Active Substance: ZOLPIDEM TARTRATE
     Dosage: UNK, PRN
  6. OXYCODONE [Concomitant]
     Active Substance: OXYCODONE
     Dosage: 10 MG, PRN
  7. OPSUMIT [Suspect]
     Active Substance: MACITENTAN
     Indication: PULMONARY HYPERTENSION
     Dosage: 10 MG, QD
     Route: 048
     Dates: start: 20160629, end: 20191029
  8. OPSUMIT [Suspect]
     Active Substance: MACITENTAN
     Dosage: 10 MG, QD
     Route: 048
  9. DUONEB [Concomitant]
     Active Substance: ALBUTEROL SULFATE\IPRATROPIUM BROMIDE

REACTIONS (26)
  - Back pain [Unknown]
  - Tibia fracture [Unknown]
  - Productive cough [Unknown]
  - Dizziness exertional [Unknown]
  - Joint injury [Unknown]
  - Dyspnoea [Unknown]
  - Insomnia [Unknown]
  - Sleep apnoea syndrome [Unknown]
  - Presyncope [Unknown]
  - Knee arthroplasty [Unknown]
  - Musculoskeletal pain [Unknown]
  - Staphylococcal infection [Unknown]
  - Gait disturbance [Unknown]
  - Small cell lung cancer metastatic [Fatal]
  - Rotator cuff syndrome [Unknown]
  - Localised infection [Unknown]
  - Hypoxia [Unknown]
  - Rash [Unknown]
  - Dizziness [Unknown]
  - Arthritis infective [Unknown]
  - Rash pruritic [Unknown]
  - Burning sensation [Unknown]
  - Bedridden [Unknown]
  - Exercise tolerance decreased [Unknown]
  - Impaired healing [Unknown]
  - Sleep disorder [Unknown]

NARRATIVE: CASE EVENT DATE: 2018
